FAERS Safety Report 15451315 (Version 1)
Quarter: 2018Q4

REPORT INFORMATION
  Report Type: Other
  Country: NL (occurrence: NL)
  Receive Date: 20181001
  Receipt Date: 20181001
  Transmission Date: 20190204
  Serious: Yes (Other)
  Sender: FDA-Public Use
  Company Number: NL-APOTEX-2018AP020724

PATIENT
  Age: 71 Year
  Sex: Female

DRUGS (12)
  1. METFORMIN [Concomitant]
     Active Substance: METFORMIN HYDROCHLORIDE
     Dosage: 850 MG, EVERY ONE DAY
     Route: 065
  2. PARACETAMOL [Interacting]
     Active Substance: ACETAMINOPHEN
     Indication: STAPHYLOCOCCAL INFECTION
  3. OXYCODONE LANNACHER [Concomitant]
     Indication: PRODUCT USED FOR UNKNOWN INDICATION
     Dosage: 5 MG, MS(1)
     Route: 065
  4. KALIUMLOSARTAN/HYDROCHLOORTHIAZIDE SANDOZ [Concomitant]
     Indication: PRODUCT USED FOR UNKNOWN INDICATION
     Dosage: 1DD1
     Route: 048
  5. FLUCLOXACILLIN [Interacting]
     Active Substance: FLUCLOXACILLIN
     Indication: STAPHYLOCOCCAL INFECTION
  6. METFORMIN [Concomitant]
     Active Substance: METFORMIN HYDROCHLORIDE
     Indication: PRODUCT USED FOR UNKNOWN INDICATION
     Dosage: 3DD1, EVERY 8 HOURS
     Route: 065
  7. MOVICOLON [Concomitant]
     Active Substance: POLYETHYLENE GLYCOL 3350\POTASSIUM CHLORIDE\SODIUM BICARBONATE\SODIUM CHLORIDE
     Indication: PRODUCT USED FOR UNKNOWN INDICATION
     Dosage: 1DD1
     Route: 065
  8. GLIMEPIRID SANDOZ [Concomitant]
     Active Substance: GLIMEPIRIDE
     Indication: PRODUCT USED FOR UNKNOWN INDICATION
     Dosage: 1DD1
     Route: 065
  9. PARACETAMOL [Suspect]
     Active Substance: ACETAMINOPHEN
     Indication: STAPHYLOCOCCAL INFECTION
     Dosage: 1000 MG, Q.6H, 4 MAAL DAAGS 2 TABLETTEN
     Route: 048
  10. OXYCODON [Concomitant]
     Active Substance: OXYCODONE
     Indication: PRODUCT USED FOR UNKNOWN INDICATION
     Dosage: 4DD1 ZN
     Route: 048
  11. SIMVASTATIN TEVA [Concomitant]
     Active Substance: SIMVASTATIN
     Indication: PRODUCT USED FOR UNKNOWN INDICATION
     Dosage: 1DD1
     Route: 048
  12. FLUCLOXACILLIN [Interacting]
     Active Substance: FLUCLOXACILLIN
     Indication: STAPHYLOCOCCAL INFECTION
     Dosage: 12 G, QD
     Route: 042
     Dates: start: 20171101, end: 20171128

REACTIONS (2)
  - Metabolic acidosis [Recovering/Resolving]
  - Drug interaction [Recovering/Resolving]

NARRATIVE: CASE EVENT DATE: 20171124
